FAERS Safety Report 19877404 (Version 1)
Quarter: 2021Q3

REPORT INFORMATION
  Report Type: Spontaneous
  Country: US (occurrence: US)
  Receive Date: 20210923
  Receipt Date: 20210923
  Transmission Date: 20211014
  Serious: No
  Sender: FDA-Public Use
  Company Number: None

PATIENT
  Age: 65 Year
  Sex: Male
  Weight: 127 kg

DRUGS (2)
  1. AMPHETAMINE?DEXTROAMPHETAMINE 10 MG TABS [Concomitant]
     Dates: start: 20170827
  2. DEXTROAMPHET SACCHARAT, AMPHET ASPARTATE, DEXTROAMPHET SULFATE AND AMPHET SULFAT [Suspect]
     Active Substance: AMPHETAMINE ASPARTATE\AMPHETAMINE SULFATE\DEXTROAMPHETAMINE SACCHARATE\DEXTROAMPHETAMINE SULFATE
     Indication: ATTENTION DEFICIT HYPERACTIVITY DISORDER
     Route: 048
     Dates: start: 20210124

REACTIONS (8)
  - Sleep deficit [None]
  - Asthenia [None]
  - Product substitution issue [None]
  - Condition aggravated [None]
  - Fatigue [None]
  - Personal relationship issue [None]
  - Job dissatisfaction [None]
  - Anxiety [None]
